FAERS Safety Report 8362475-5 (Version None)
Quarter: 2012Q2

REPORT INFORMATION
  Report Type: 
  Country: None (occurrence: None)
  Receive Date: 20120514
  Receipt Date: 20120514
  Transmission Date: 20120825
  Serious: Yes (Other)
  Sender: FDA-Public Use
  Company Number: None

PATIENT
  Age: 52 Year
  Sex: Male
  Weight: 97.977 kg

DRUGS (1)
  1. ALTEPLASE 100MG VIAL GENENTECH [Suspect]
     Indication: ISCHAEMIC STROKE
     Dosage: 100MG ONCE IV
     Route: 042
     Dates: start: 20120510, end: 20120510

REACTIONS (1)
  - ANGIOEDEMA [None]
